FAERS Safety Report 6213590-3 (Version None)
Quarter: 2009Q2

REPORT INFORMATION
  Report Type: 
  Country: None (occurrence: None)
  Receive Date: 20090603
  Receipt Date: 20090501
  Transmission Date: 20091009
  Serious: No
  Sender: FDA-Public Use
  Company Number: US-BAYER-200911382BCC

PATIENT
  Age: 67 Year
  Sex: Male
  Weight: 84 kg

DRUGS (1)
  1. ALEVE [Suspect]
     Indication: MUSCULOSKELETAL PAIN
     Dosage: UNIT DOSE: 220 MG
     Route: 048
     Dates: start: 20090101, end: 20090420

REACTIONS (3)
  - ABDOMINAL PAIN UPPER [None]
  - CONSTIPATION [None]
  - DYSURIA [None]
